FAERS Safety Report 7330015-5 (Version None)
Quarter: 2011Q1

REPORT INFORMATION
  Report Type: 
  Country: None (occurrence: None)
  Receive Date: 20110303
  Receipt Date: 20100901
  Transmission Date: 20110831
  Serious: Yes (Hospitalization, Other)
  Sender: FDA-Public Use
  Company Number: US-BAYER-201024920NA

PATIENT
  Sex: Female
  Weight: 72.727 kg

DRUGS (13)
  1. YASMIN [Suspect]
     Indication: GENITAL HAEMORRHAGE
     Route: 048
     Dates: start: 20070601, end: 20100101
  2. CYCLOBENZAPRINE HYDROCHLORIDE [Concomitant]
     Indication: PRODUCT USED FOR UNKNOWN INDICATION
  3. YAZ [Suspect]
     Indication: DYSMENORRHOEA
  4. DICYCLOMINE [Concomitant]
     Indication: PAIN
     Route: 048
  5. MULTI-VITAMIN [Concomitant]
     Indication: PRODUCT USED FOR UNKNOWN INDICATION
     Route: 065
     Dates: start: 20050101
  6. CIPROFLOXACIN [Concomitant]
     Indication: PRODUCT USED FOR UNKNOWN INDICATION
     Dosage: 1000 MG (DAILY DOSE), BID, ORAL
     Route: 048
  7. YASMIN [Suspect]
     Indication: DYSMENORRHOEA
     Route: 048
     Dates: start: 20070131, end: 20070501
  8. YAZ [Suspect]
     Indication: GENITAL HAEMORRHAGE
     Route: 048
     Dates: start: 20070501, end: 20100101
  9. YASMIN [Suspect]
     Indication: CONTRACEPTION
  10. YAZ [Suspect]
  11. ESOMEPRAZOLE MAGNESIUM TRIHYDRATE [Concomitant]
     Indication: PRODUCT USED FOR UNKNOWN INDICATION
     Route: 048
  12. FLUTICASONE PROPIONATE [Concomitant]
     Indication: PRODUCT USED FOR UNKNOWN INDICATION
     Dosage: 0.2 % (DAILY DOSE), QD, RESPIRATORY
     Route: 055
  13. ACETAMINOPHEN [Concomitant]
     Indication: PRODUCT USED FOR UNKNOWN INDICATION
     Dosage: 1950 MG (DAILY DOSE), Q4HR, ORAL
     Route: 048

REACTIONS (6)
  - BILIARY DYSKINESIA [None]
  - ABDOMINAL PAIN UPPER [None]
  - DIARRHOEA [None]
  - CHOLECYSTITIS CHRONIC [None]
  - ABDOMINAL PAIN [None]
  - NAUSEA [None]
